FAERS Safety Report 4301816-2 (Version None)
Quarter: 2004Q1

REPORT INFORMATION
  Report Type: 
  Country: None (occurrence: None)
  Receive Date: 20040218
  Receipt Date: 20030807
  Transmission Date: 20041129
  Serious: Yes (Hospitalization)
  Sender: FDA-Public Use
  Company Number: 2003157470US

PATIENT
  Sex: Female

DRUGS (1)
  1. DELTASONE [Suspect]
     Indication: TEMPORAL ARTERITIS
     Dosage: 60 MG, QD; 50 MG, QD; 40 MG, QD; 7.5 MG, QD
     Dates: start: 20030128

REACTIONS (2)
  - CONSTIPATION [None]
  - LARGE INTESTINE PERFORATION [None]
